FAERS Safety Report 8004163-0 (Version None)
Quarter: 2011Q4

REPORT INFORMATION
  Report Type: 
  Country: None (occurrence: None)
  Receive Date: 20111223
  Receipt Date: 20111215
  Transmission Date: 20120403
  Serious: Yes (Death, Hospitalization)
  Sender: FDA-Public Use
  Company Number: US-BIOGENIDEC-2011BI045059

PATIENT
  Age: 56 Year
  Sex: Female

DRUGS (12)
  1. LEXAPRO [Concomitant]
  2. ALPRAZOLAM [Concomitant]
  3. GABAPENTIN [Concomitant]
  4. BELLADONNA [Concomitant]
  5. PERCOCET [Concomitant]
  6. LAMICTAL [Concomitant]
  7. TYSABRI [Suspect]
     Indication: MULTIPLE SCLEROSIS
     Route: 042
     Dates: start: 20070216, end: 20080806
  8. ACTIQ [Concomitant]
  9. ARICEPT [Concomitant]
  10. MIRTAZAPINE [Concomitant]
  11. OXYCONTIN [Concomitant]
  12. SEROQUEL [Concomitant]

REACTIONS (4)
  - ADDISON'S DISEASE [None]
  - FIBROMYALGIA [None]
  - DECREASED APPETITE [None]
  - MULTIPLE SCLEROSIS [None]
